FAERS Safety Report 9132399 (Version 1)
Quarter: 2013Q1

REPORT INFORMATION
  Report Type: Report from Study
  Country: US (occurrence: US)
  Receive Date: 20130301
  Receipt Date: 20130301
  Transmission Date: 20140127
  Serious: Yes (Hospitalization)
  Sender: FDA-Public Use
  Company Number: US-GLAXOSMITHKLINE-A0804635A

PATIENT
  Age: 60 Year
  Sex: Female
  Weight: 73.6 kg

DRUGS (17)
  1. LAPATINIB [Suspect]
     Indication: BREAST CANCER
     Dosage: 750MG PER DAY
     Route: 048
     Dates: start: 20090217, end: 20090803
  2. TRASTUZUMAB [Suspect]
     Indication: BREAST CANCER
     Dosage: 2MGK WEEKLY
     Route: 042
     Dates: start: 20090216, end: 20090713
  3. PACLITAXEL [Suspect]
     Indication: BREAST CANCER
     Dosage: 80MGM2 WEEKLY
     Route: 042
     Dates: start: 20090216, end: 20090504
  4. ALBUTEROL [Concomitant]
     Dates: start: 1999
  5. FLUTICASONE PROPIONATE + SALMETEROL XINAFOATE [Concomitant]
     Dates: start: 2007
  6. ACETAMINOPHEN [Concomitant]
     Dates: start: 20090511
  7. IBUPROFEN [Concomitant]
     Dates: start: 20090615
  8. NAPROXEN [Concomitant]
     Dates: start: 20090713, end: 20090820
  9. HYDROCORTISONE [Concomitant]
     Dates: start: 20090722, end: 20090803
  10. DIPHENHYDRAMINE [Concomitant]
     Dates: start: 20090722, end: 20090803
  11. LORAZEPAM [Concomitant]
     Dates: start: 20090723
  12. DOXYCYCLINE [Concomitant]
     Dates: start: 20090725, end: 20090728
  13. ESCITALOPRAM [Concomitant]
     Dates: start: 20090728, end: 20090802
  14. VENLAFAXINE [Concomitant]
     Dates: start: 20090803
  15. LOPERAMIDE [Concomitant]
     Dates: start: 20090804, end: 20090806
  16. CEFTRIAXONE [Concomitant]
     Dates: start: 20090805, end: 20090805
  17. PROMETHAZINE [Concomitant]
     Dates: start: 20090805, end: 20090806

REACTIONS (1)
  - Cardiac failure congestive [Recovered/Resolved]
